FAERS Safety Report 8682438 (Version 2)
Quarter: 2012Q4

REPORT INFORMATION
  Report Type: 
  Country: US (occurrence: US)
  Receive Date: 20120725
  Receipt Date: 20120829
  Transmission Date: 20130627
  Serious: Yes (Hospitalization)
  Sender: FDA-Public Use
  Company Number: US-ASTRAZENECA-2012SE49817

PATIENT
  Age: 61 Year
  Sex: Male

DRUGS (1)
  1. ATACAND [Suspect]
     Route: 048

REACTIONS (6)
  - Head injury [Unknown]
  - General physical health deterioration [Unknown]
  - Constipation [Unknown]
  - Hypertension [Unknown]
  - Renal failure [Unknown]
  - Dizziness [Unknown]
